FAERS Safety Report 6257235-5 (Version None)
Quarter: 2009Q3

REPORT INFORMATION
  Report Type: 
  Country: None (occurrence: None)
  Receive Date: 20090706
  Receipt Date: 20090624
  Transmission Date: 20100115
  Serious: Yes (Other)
  Sender: FDA-Public Use
  Company Number: ES-PFIZER INC-2009231258

PATIENT
  Age: 56 Year

DRUGS (6)
  1. ALDACTONE [Suspect]
     Indication: ACUTE MYOCARDIAL INFARCTION
     Dosage: 100 MG, 1X/DAY
     Route: 048
     Dates: start: 20090101, end: 20090101
  2. LESCOL [Suspect]
     Indication: ACUTE MYOCARDIAL INFARCTION
     Dosage: 80 MG, 1X/DAY
     Route: 048
     Dates: start: 20060101, end: 20090101
  3. NITROGLYCERIN [Concomitant]
     Indication: ACUTE MYOCARDIAL INFARCTION
     Dosage: UNK
     Route: 062
     Dates: start: 20060101
  4. ASTUDAL [Concomitant]
     Indication: ACUTE MYOCARDIAL INFARCTION
     Dosage: 5 MG, 1X/DAY
     Dates: start: 20060101
  5. COROPRES [Concomitant]
     Indication: ACUTE MYOCARDIAL INFARCTION
     Dosage: 6.25 MG, 2X/DAY
     Route: 048
     Dates: start: 20060101
  6. DUPHALAC [Concomitant]
     Indication: CONSTIPATION
     Dosage: UNK
     Route: 048
     Dates: start: 20060101

REACTIONS (1)
  - RHABDOMYOLYSIS [None]
